FAERS Safety Report 10256276 (Version 1)
Quarter: 2014Q2

REPORT INFORMATION
  Report Type: Spontaneous
  Country: US (occurrence: US)
  Receive Date: 20140624
  Receipt Date: 20140624
  Transmission Date: 20141212
  Serious: Yes (Death)
  Sender: FDA-Public Use
  Company Number: US-ASTELLAS-2014US007188

PATIENT
  Age: 48 Year
  Sex: Male

DRUGS (1)
  1. ASTAGRAF XL [Suspect]
     Indication: RENAL TRANSPLANT
     Dosage: 0.5 MG, ONCE DAILY
     Route: 048
     Dates: start: 20140324, end: 20140614

REACTIONS (2)
  - Haemorrhage [Fatal]
  - Fall [Fatal]
